FAERS Safety Report 12405916 (Version 2)
Quarter: 2020Q3

REPORT INFORMATION
  Report Type: Report from Study
  Country: IT (occurrence: IT)
  Receive Date: 20160526
  Receipt Date: 20200722
  Transmission Date: 20201102
  Serious: Yes (Hospitalization)
  Sender: FDA-Public Use
  Company Number: IT-ROCHE-1763335

PATIENT
  Age: 60 Year
  Sex: Male
  Weight: 68 kg

DRUGS (7)
  1. TACHIDOL [Concomitant]
     Active Substance: ACETAMINOPHEN\CODEINE PHOSPHATE
     Indication: CHEST PAIN
     Route: 048
     Dates: start: 20160428
  2. BEVACIZUMAB. [Suspect]
     Active Substance: BEVACIZUMAB
     Indication: COLORECTAL CANCER METASTATIC
     Dosage: DOSE: 5 MG/KG; DATE OF LAST DOSE PRIOR TO SAE (CYCLE 3): 26/APR/2016?TEMPORARILY INTERRUPTED
     Route: 042
     Dates: start: 20160323, end: 20160506
  3. FOLINIC ACID [Suspect]
     Active Substance: LEUCOVORIN
     Indication: COLORECTAL CANCER METASTATIC
     Dosage: DATE OF LAST DOSE PRIOR TO SAE (CYCLE 3): 26/APR/2016?TEMPORARILY INTERRUPTED
     Route: 042
     Dates: start: 20160323, end: 20160506
  4. 5?FLUOROURACIL [Suspect]
     Active Substance: FLUOROURACIL
     Indication: COLORECTAL CANCER METASTATIC
     Dosage: DATE OF LAST DOSE PRIOR TO SAE (CYCLE 3): 26/APR/2016?TEMPORARILY INTERRUPTED
     Route: 042
     Dates: start: 20160323, end: 20160506
  5. OXALIPLATIN. [Suspect]
     Active Substance: OXALIPLATIN
     Indication: COLORECTAL CANCER METASTATIC
     Dosage: DATE OF LAST DOSE PRIOR TO SAE (CYCLE 3): 26/APR/2016?TEMPORARILY INTERRUPTED
     Route: 042
     Dates: start: 20160323, end: 20160506
  6. IRINOTECAN [Suspect]
     Active Substance: IRINOTECAN
     Indication: COLORECTAL CANCER METASTATIC
     Dosage: DATE OF LAST DOSE PRIOR TO SAE (CYCLE 3): 26/APR/2016?TEMPORARILY INTERRUPTED
     Route: 042
     Dates: start: 20160323, end: 20160506
  7. PANTORC [Concomitant]
     Active Substance: PANTOPRAZOLE SODIUM
     Indication: GASTROINTESTINAL DISORDER PROPHYLAXIS
     Route: 048
     Dates: start: 20160209

REACTIONS (3)
  - Pyrexia [Not Recovered/Not Resolved]
  - Deep vein thrombosis [Not Recovered/Not Resolved]
  - Oropharyngeal pain [Recovered/Resolved]

NARRATIVE: CASE EVENT DATE: 20160508
